FAERS Safety Report 7052592-4 (Version None)
Quarter: 2010Q4

REPORT INFORMATION
  Report Type: 
  Country: None (occurrence: None)
  Receive Date: 20101019
  Receipt Date: 20101007
  Transmission Date: 20110411
  Serious: Yes (Hospitalization)
  Sender: FDA-Public Use
  Company Number: SE-PFIZER INC-2010127304

PATIENT
  Age: 77 Year
  Sex: Male

DRUGS (7)
  1. SUTENT [Suspect]
     Indication: RENAL CANCER METASTATIC
     Dosage: 50 MG, 1X/DAY
     Route: 048
     Dates: start: 20100429, end: 20100524
  2. NEXIUM [Concomitant]
     Dosage: UNK
  3. BETAPRED [Concomitant]
     Dosage: UNK
  4. FURIX [Concomitant]
     Dosage: UNK
  5. MORPHINE [Concomitant]
     Dosage: UNK
  6. DOLCONTIN [Concomitant]
     Dosage: UNK
  7. FRAGMIN [Concomitant]
     Dosage: UNK

REACTIONS (3)
  - GASTRIC ULCER PERFORATION [None]
  - PNEUMONIA [None]
  - SEPSIS [None]
